FAERS Safety Report 8304608-2 (Version None)
Quarter: 2012Q2

REPORT INFORMATION
  Report Type: 
  Country: None (occurrence: None)
  Receive Date: 20120423
  Receipt Date: 20120411
  Transmission Date: 20120825
  Serious: Yes (Hospitalization)
  Sender: FDA-Public Use
  Company Number: CA-JNJFOC-20120406836

PATIENT
  Age: 36 Year
  Sex: Female

DRUGS (8)
  1. TOPIRAMATE [Suspect]
     Dosage: DAY 2 AND 3
     Route: 048
  2. CLONAZEPAM [Suspect]
     Indication: PRODUCT USED FOR UNKNOWN INDICATION
     Route: 048
  3. TOPIRAMATE [Suspect]
     Route: 048
  4. BENZTROPINE MESYLATE [Suspect]
     Indication: PRODUCT USED FOR UNKNOWN INDICATION
     Route: 048
  5. ZUCLOPENTHIXOL [Suspect]
     Indication: PRODUCT USED FOR UNKNOWN INDICATION
     Route: 048
  6. CITALOPRAM HYDROBROMIDE [Suspect]
     Indication: PRODUCT USED FOR UNKNOWN INDICATION
     Route: 048
  7. TOPIRAMATE [Suspect]
     Indication: EPILEPSY
     Dosage: ON DAY 4 AND 5
     Route: 048
  8. TOPIRAMATE [Suspect]
     Route: 048

REACTIONS (1)
  - HEMIPARESIS [None]
